FAERS Safety Report 17123283 (Version 1)
Quarter: 2019Q4

REPORT INFORMATION
  Report Type: Spontaneous
  Country: US (occurrence: US)
  Receive Date: 20191206
  Receipt Date: 20191206
  Transmission Date: 20200122
  Serious: No
  Sender: FDA-Public Use
  Company Number: US-ROCHE-2365688

PATIENT
  Age: 46 Year
  Sex: Female
  Weight: 52.2 kg

DRUGS (2)
  1. OCREVUS [Suspect]
     Active Substance: OCRELIZUMAB
     Indication: MULTIPLE SCLEROSIS
     Dosage: EVERY 6 MONTHS
     Route: 042
     Dates: start: 20180402
  2. METHYLPREDNISOLONE. [Concomitant]
     Active Substance: METHYLPREDNISOLONE
     Dosage: EVERY 6 MONTHS
     Route: 042
     Dates: start: 20180402

REACTIONS (3)
  - Off label use [Unknown]
  - B-lymphocyte count decreased [Not Recovered/Not Resolved]
  - Intentional product use issue [Unknown]

NARRATIVE: CASE EVENT DATE: 20180625
